FAERS Safety Report 6005563-0 (Version None)
Quarter: 2008Q4

REPORT INFORMATION
  Report Type: 
  Country: None (occurrence: None)
  Receive Date: 20081215
  Receipt Date: 20081128
  Transmission Date: 20090506
  Serious: Yes (Hospitalization)
  Sender: FDA-Public Use
  Company Number: DSA_32610_2008

PATIENT
  Sex: Female
  Weight: 47 kg

DRUGS (7)
  1. LORAZEPAM [Suspect]
     Indication: DEPRESSION
     Dosage: SEE IMAGE
     Route: 060
     Dates: start: 20080630, end: 20080714
  2. LORAZEPAM [Suspect]
     Indication: DEPRESSION
     Dosage: SEE IMAGE
     Route: 060
     Dates: start: 20080718, end: 20080721
  3. MIRTAZAPINE [Suspect]
     Indication: DEPRESSION
     Dosage: (DF ORAL), (15 MG QD ORAL)
     Route: 048
     Dates: start: 20080619, end: 20080710
  4. MIRTAZAPINE [Suspect]
     Indication: DEPRESSION
     Dosage: (DF ORAL), (15 MG QD ORAL)
     Route: 048
     Dates: start: 20080711
  5. SAROTEN           (SAROTEN RETARD - AMITRIPTYLINE HYDROCHLORIDE) [Suspect]
     Indication: DEPRESSION
     Dosage: (75 MG, DF ORAL)
     Route: 048
     Dates: start: 20080610
  6. ACETAMINOPHEN [Concomitant]
  7. ORAL CONTRACEPTIVE NOS [Concomitant]

REACTIONS (2)
  - DRUG INTERACTION [None]
  - LONG QT SYNDROME [None]
